FAERS Safety Report 19578384 (Version 8)
Quarter: 2025Q2

REPORT INFORMATION
  Report Type: Report from Study
  Country: US (occurrence: US)
  Receive Date: 20210719
  Receipt Date: 20250429
  Transmission Date: 20250717
  Serious: Yes (Other)
  Sender: TAKEDA
  Company Number: US-TAKEDA-US201903511

PATIENT
  Age: 60 Year
  Sex: Male
  Weight: 117 kg

DRUGS (15)
  1. HUMAN IMMUNOGLOBULIN G [Suspect]
     Active Substance: HUMAN IMMUNOGLOBULIN G
     Indication: Primary immunodeficiency syndrome
     Dosage: 60 GRAM, Q4WEEKS
     Dates: start: 20220121
  2. HUMAN IMMUNOGLOBULIN G [Suspect]
     Active Substance: HUMAN IMMUNOGLOBULIN G
     Indication: Immunodeficiency common variable
     Dosage: 50 GRAM, MONTHLY
  3. HUMAN IMMUNOGLOBULIN G [Suspect]
     Active Substance: HUMAN IMMUNOGLOBULIN G
     Indication: Hypogammaglobulinaemia
  4. HUMAN IMMUNOGLOBULIN G [Suspect]
     Active Substance: HUMAN IMMUNOGLOBULIN G
  5. CUVITRU [Suspect]
     Active Substance: HUMAN IMMUNOGLOBULIN G
     Indication: Hypogammaglobulinaemia
  6. CUVITRU [Suspect]
     Active Substance: HUMAN IMMUNOGLOBULIN G
     Indication: Primary immunodeficiency syndrome
  7. DIPHENHYDRAMINE HYDROCHLORIDE [Concomitant]
     Active Substance: DIPHENHYDRAMINE HYDROCHLORIDE
  8. VITAMIN D3 [Concomitant]
     Active Substance: CHOLECALCIFEROL
  9. EPINEPHRINE [Concomitant]
     Active Substance: EPINEPHRINE
  10. SODIUM CHLORIDE [Concomitant]
     Active Substance: SODIUM CHLORIDE
  11. ACETAMINOPHEN [Concomitant]
     Active Substance: ACETAMINOPHEN
  12. SODIUM CHLORIDE [Concomitant]
     Active Substance: SODIUM CHLORIDE
  13. SOLU-CORTEF [Concomitant]
     Active Substance: HYDROCORTISONE SODIUM SUCCINATE
  14. GLUCOSAMINE [Concomitant]
     Active Substance: GLUCOSAMINE
  15. VITAMIN B [Concomitant]
     Active Substance: VITAMIN B

REACTIONS (13)
  - Nasopharyngitis [Unknown]
  - Renal cancer [Unknown]
  - Non-Hodgkin^s lymphoma [Unknown]
  - Hepatic cirrhosis [Unknown]
  - Sinusitis [Recovering/Resolving]
  - Weight decreased [Unknown]
  - COVID-19 [Unknown]
  - Hepatic steatosis [Unknown]
  - Pulmonary mass [Unknown]
  - Electrocardiogram abnormal [Unknown]
  - Gastrointestinal disorder [Unknown]
  - Upper respiratory tract infection [Not Recovered/Not Resolved]
  - Diarrhoea [Unknown]

NARRATIVE: CASE EVENT DATE: 20220128
